FAERS Safety Report 5425841-3 (Version None)
Quarter: 2007Q3

REPORT INFORMATION
  Report Type: 
  Country: None (occurrence: None)
  Receive Date: 20070823
  Receipt Date: 20070823
  Transmission Date: 20080115
  Serious: Yes (Life-Threatening)
  Sender: FDA-Public Use
  Company Number: None

PATIENT
  Age: 57 Year
  Sex: Male
  Weight: 77 kg

DRUGS (2)
  1. THYMOGLOBULIN [Suspect]
     Indication: PROPHYLAXIS
     Dosage: 225MG DAILY IV
     Route: 042
     Dates: start: 20070722, end: 20070722
  2. THYMOGLOBULIN [Suspect]
     Indication: TRANSPLANT
     Dosage: 225MG DAILY IV
     Route: 042
     Dates: start: 20070722, end: 20070722

REACTIONS (3)
  - CHILLS [None]
  - HYPOTENSION [None]
  - PYREXIA [None]
